FAERS Safety Report 11330584 (Version 2)
Quarter: 2015Q3

REPORT INFORMATION
  Report Type: Spontaneous
  Country: CN (occurrence: CN)
  Receive Date: 20150803
  Receipt Date: 20150810
  Transmission Date: 20151125
  Serious: Yes (Hospitalization)
  Sender: FDA-Public Use
  Company Number: CN-ROCHE-1614400

PATIENT
  Age: 8 Year
  Sex: Male
  Weight: 25 kg

DRUGS (1)
  1. SOMATROPIN [Suspect]
     Active Substance: SOMATROPIN
     Indication: GROWTH RETARDATION
     Dosage: 3 IU/D (0.12 IU/KG.D)
     Route: 042

REACTIONS (5)
  - Type 1 diabetes mellitus [Unknown]
  - Hypoglycaemia [Recovering/Resolving]
  - Diabetic ketoacidosis [Recovering/Resolving]
  - Product use issue [Unknown]
  - Incorrect route of drug administration [Unknown]
